FAERS Safety Report 9952346 (Version 1)
Quarter: 2014Q1

REPORT INFORMATION
  Report Type: Report from Study
  Country: US (occurrence: US)
  Receive Date: 20140304
  Receipt Date: 20140304
  Transmission Date: 20141002
  Serious: No
  Sender: FDA-Public Use
  Company Number: US-ABBVIE-13P-163-1072117-00

PATIENT
  Age: 60 Year
  Sex: Female

DRUGS (11)
  1. HUMIRA [Suspect]
     Indication: CROHN^S DISEASE
     Dates: start: 201211
  2. GABAPENTIN [Concomitant]
     Indication: PAIN IN EXTREMITY
     Dosage: 300MG X 4 DAILY
  3. ASACOL [Concomitant]
     Indication: PRODUCT USED FOR UNKNOWN INDICATION
     Dosage: 1 IN AM AND 1 IN PM
  4. ALIGN [Concomitant]
     Indication: PRODUCT USED FOR UNKNOWN INDICATION
     Dosage: A PROBIOTIC
  5. OMEPRAZOLE [Concomitant]
     Indication: GASTROOESOPHAGEAL REFLUX DISEASE
  6. ADVAIR [Concomitant]
     Indication: CHRONIC OBSTRUCTIVE PULMONARY DISEASE
     Dosage: 2 PUFFS IN AM AND PM
  7. DICYCLOMINE [Concomitant]
     Indication: CROHN^S DISEASE
     Dosage: 20MG X 1 OR 2 TABLETS AS NEEDED
  8. LOMOTIL [Concomitant]
     Indication: CROHN^S DISEASE
  9. BENADRYL [Concomitant]
     Indication: SEASONAL ALLERGY
  10. CLOTRIMAZOLE [Concomitant]
     Indication: SEASONAL ALLERGY
  11. MUCINEX [Concomitant]
     Indication: PULMONARY CONGESTION

REACTIONS (2)
  - Vision blurred [Recovering/Resolving]
  - Crohn^s disease [Recovering/Resolving]
